FAERS Safety Report 17730469 (Version 2)
Quarter: 2020Q2

REPORT INFORMATION
  Report Type: Spontaneous
  Country: US (occurrence: US)
  Receive Date: 20200430
  Receipt Date: 20200514
  Transmission Date: 20200714
  Serious: No
  Sender: FDA-Public Use
  Company Number: US-BRISTOL-MYERS SQUIBB COMPANY-BMS-2020-034920

PATIENT
  Sex: Male

DRUGS (1)
  1. OPDIVO [Suspect]
     Active Substance: NIVOLUMAB
     Indication: SINUS CANCER METASTATIC
     Dosage: UNK
     Route: 065
     Dates: start: 201706

REACTIONS (2)
  - Intentional product use issue [Unknown]
  - Granulocyte count decreased [Unknown]
